FAERS Safety Report 18415839 (Version 1)
Quarter: 2020Q4

REPORT INFORMATION
  Report Type: Spontaneous
  Country: US (occurrence: US)
  Receive Date: 20201022
  Receipt Date: 20201022
  Transmission Date: 20210114
  Serious: No
  Sender: FDA-Public Use
  Company Number: US-ASTRAZENECA-2020SF26086

PATIENT
  Sex: Female

DRUGS (1)
  1. TAGRISSO [Suspect]
     Active Substance: OSIMERTINIB
     Indication: NON-SMALL CELL LUNG CANCER
     Route: 048

REACTIONS (10)
  - Alopecia [Unknown]
  - Arthralgia [Unknown]
  - Nail discolouration [Unknown]
  - Nail disorder [Unknown]
  - Dry skin [Unknown]
  - Decreased appetite [Unknown]
  - Non-cardiac chest pain [Unknown]
  - Body temperature increased [Unknown]
  - Pulmonary congestion [Unknown]
  - Weight decreased [Unknown]
